FAERS Safety Report 12684018 (Version 2)
Quarter: 2016Q3

REPORT INFORMATION
  Report Type: Spontaneous
  Country: US (occurrence: US)
  Receive Date: 20160825
  Receipt Date: 20160825
  Transmission Date: 20161109
  Serious: No
  Sender: FDA-Public Use
  Company Number: US-ALLERGAN-1662934US

PATIENT
  Sex: Male

DRUGS (2)
  1. ANDRODERM [Suspect]
     Active Substance: TESTOSTERONE
     Indication: BLOOD TESTOSTERONE
     Dosage: 2 MG, UNK
     Route: 062
  2. ANDRODERM [Suspect]
     Active Substance: TESTOSTERONE
     Indication: BLOOD TESTOSTERONE
     Dosage: 4 MG, UNK
     Route: 062
     Dates: start: 1998

REACTIONS (8)
  - Fatigue [Recovered/Resolved]
  - Apathy [Recovered/Resolved]
  - Insomnia [Recovered/Resolved]
  - Application site erythema [Unknown]
  - Product adhesion issue [Unknown]
  - Hyperhidrosis [Recovered/Resolved]
  - Blood glucose decreased [Recovered/Resolved]
  - Off label use [Unknown]
